FAERS Safety Report 4347669-8 (Version None)
Quarter: 2004Q1

REPORT INFORMATION
  Report Type: 
  Country: None (occurrence: None)
  Receive Date: 20040325
  Receipt Date: 20040126
  Transmission Date: 20041129
  Serious: No
  Sender: FDA-Public Use
  Company Number: USA040157572

PATIENT
  Sex: Female
  Weight: 45 kg

DRUGS (1)
  1. FORTEO [Suspect]
     Indication: OSTEOPOROSIS
     Dates: start: 20040122

REACTIONS (4)
  - ANXIETY [None]
  - HEART RATE INCREASED [None]
  - NERVOUSNESS [None]
  - TREMOR [None]
